FAERS Safety Report 7201383-X (Version None)
Quarter: 2010Q4

REPORT INFORMATION
  Report Type: 
  Country: None (occurrence: None)
  Receive Date: 20101229
  Receipt Date: 20101221
  Transmission Date: 20110411
  Serious: Yes (Other)
  Sender: FDA-Public Use
  Company Number: FR-JNJFOC-20101207576

PATIENT
  Sex: Female

DRUGS (8)
  1. IMODIUM [Suspect]
     Indication: PRODUCT USED FOR UNKNOWN INDICATION
     Route: 048
  2. EVEROLIMUS [Suspect]
     Indication: PRODUCT USED FOR UNKNOWN INDICATION
     Route: 048
  3. LEVOTHYROX [Suspect]
     Indication: PRODUCT USED FOR UNKNOWN INDICATION
     Route: 048
  4. NEXIUM [Suspect]
     Indication: PRODUCT USED FOR UNKNOWN INDICATION
     Route: 048
  5. FOSAMAX [Suspect]
     Indication: PRODUCT USED FOR UNKNOWN INDICATION
     Route: 048
  6. CLARITIN [Suspect]
     Indication: RASH
     Route: 048
  7. DEXERYL [Suspect]
     Indication: PRODUCT USED FOR UNKNOWN INDICATION
     Route: 061
  8. ELUDRIL [Suspect]
     Indication: PRODUCT USED FOR UNKNOWN INDICATION
     Route: 048

REACTIONS (5)
  - ASTHENIA [None]
  - COUGH [None]
  - DECREASED APPETITE [None]
  - LUNG DISORDER [None]
  - PYREXIA [None]
